FAERS Safety Report 7296120-7 (Version None)
Quarter: 2011Q1

REPORT INFORMATION
  Report Type: 
  Country: None (occurrence: None)
  Receive Date: 20110216
  Receipt Date: 20110210
  Transmission Date: 20110831
  Serious: Yes (Death, Other)
  Sender: FDA-Public Use
  Company Number: US-ROCHE-759455

PATIENT

DRUGS (3)
  1. MYCOPHENOLATE MOFETIL [Suspect]
     Dosage: MAINTENANCE IMMUNOSUPPRESSION
     Route: 065
  2. TACROLIMUS [Suspect]
     Dosage: MAINTENANCE IMMUNOSUPPRESSION
     Route: 065
  3. PREDNISONE TAB [Suspect]
     Dosage: MAINTENANCE IMMUNOSUPPRESSION
     Route: 065

REACTIONS (4)
  - DEATH [None]
  - ABDOMINAL INFECTION [None]
  - WOUND INFECTION [None]
  - PNEUMONIA [None]
